FAERS Safety Report 8773403 (Version 1)
Quarter: 2012Q4

REPORT INFORMATION
  Report Type: 
  Country: VE (occurrence: VE)
  Receive Date: 20120907
  Receipt Date: 20120907
  Transmission Date: 20130627
  Serious: Yes (Death)
  Sender: FDA-Public Use
  Company Number: VE-SANOFI-AVENTIS-2012SA062483

PATIENT
  Age: 58 Year
  Sex: Female

DRUGS (6)
  1. PLAVIX [Suspect]
     Indication: AORTIC ANEURYSM
     Route: 048
     Dates: start: 2010, end: 20120424
  2. BLOKIUM [Concomitant]
  3. LIPITOR /UNK/ [Concomitant]
  4. BENICAR [Concomitant]
  5. RIVOTRIL [Concomitant]
  6. OMEPRAZOLE [Concomitant]

REACTIONS (2)
  - Aortic aneurysm [Fatal]
  - Off label use [Unknown]
